FAERS Safety Report 11267025 (Version 2)
Quarter: 2016Q3

REPORT INFORMATION
  Report Type: Spontaneous
  Country: US (occurrence: US)
  Receive Date: 20150713
  Receipt Date: 20160707
  Transmission Date: 20161109
  Serious: Yes (Other)
  Sender: FDA-Public Use
  Company Number: US-DSJP-DSU-2015-103893

PATIENT
  Sex: Male
  Weight: 98.41 kg

DRUGS (1)
  1. BENICAR HCT [Suspect]
     Active Substance: HYDROCHLOROTHIAZIDE\OLMESARTAN MEDOXOMIL
     Indication: HYPERTENSION
     Dosage: 40/12.5 MG , UNK
     Dates: start: 2006, end: 2015

REACTIONS (6)
  - Malabsorption [Unknown]
  - Large intestine polyp [Unknown]
  - Diverticulum [Unknown]
  - Decreased appetite [Unknown]
  - Haemorrhoids [Unknown]
  - Renal disorder [Unknown]

NARRATIVE: CASE EVENT DATE: 2006
